FAERS Safety Report 8885954 (Version 1)
Quarter: 2012Q4

REPORT INFORMATION
  Report Type: 
  Country: GB (occurrence: GB)
  Receive Date: 20121105
  Receipt Date: 20121105
  Transmission Date: 20130627
  Serious: Yes (Other)
  Sender: FDA-Public Use
  Company Number: GB-NOVOPROD-361061

PATIENT
  Age: 35 Year
  Sex: Male
  Weight: 96 kg

DRUGS (2)
  1. VICTOZA [Suspect]
     Indication: TYPE 2 DIABETES MELLITUS
     Dosage: 1.2
     Route: 065
     Dates: start: 20120511
  2. METFORMIN [Concomitant]
     Dosage: UNK
     Route: 065

REACTIONS (1)
  - Hypothyroidism [Unknown]
